FAERS Safety Report 12436372 (Version 1)
Quarter: 2016Q2

REPORT INFORMATION
  Report Type: Spontaneous
  Country: JP (occurrence: JP)
  Receive Date: 20160605
  Receipt Date: 20160605
  Transmission Date: 20160815
  Serious: Yes (Death, Other)
  Sender: FDA-Public Use
  Company Number: JP-ROCHE-1749733

PATIENT
  Age: 61 Year
  Sex: Female
  Weight: 56 kg

DRUGS (12)
  1. DECADRON [Concomitant]
     Active Substance: DEXAMETHASONE
     Route: 048
     Dates: start: 20131204, end: 20140110
  2. FAMOTIDINE D [Concomitant]
     Active Substance: FAMOTIDINE
     Route: 048
     Dates: start: 20131206, end: 20150520
  3. LOXOPROFEN [Concomitant]
     Active Substance: LOXOPROFEN
     Dosage: THE FRACTIONATION DOSE FREQUENCY IS UNCERTAIN. ?DOSE INTERVAL UNCERTAINTY
     Route: 048
     Dates: start: 20131211, end: 20150524
  4. AVASTIN [Suspect]
     Active Substance: BEVACIZUMAB
     Indication: BREAST CANCER
     Route: 041
     Dates: start: 20131203, end: 2014
  5. PACLITAXEL. [Concomitant]
     Active Substance: PACLITAXEL
     Indication: BREAST CANCER
     Dosage: THE FRACTIONATION DOSE FREQUENCY IS UNCERTAIN (137 MG)?DOSE INTERVAL UNCERTAINTY
     Route: 041
     Dates: start: 20131203, end: 20150320
  6. DENOSUMAB [Concomitant]
     Active Substance: DENOSUMAB
     Dosage: DOSAGE IS UNCERTAIN.
     Route: 065
  7. AVASTIN [Suspect]
     Active Substance: BEVACIZUMAB
     Route: 041
     Dates: start: 20150123, end: 20150320
  8. FERROMIA [Concomitant]
     Active Substance: FERROUS CITRATE
     Route: 048
     Dates: start: 20131202, end: 20150520
  9. FUROSEMIDE. [Concomitant]
     Active Substance: FUROSEMIDE
     Route: 048
     Dates: start: 20131202, end: 20150520
  10. MAGMITT [Concomitant]
     Active Substance: MAGNESIUM OXIDE
     Route: 048
     Dates: start: 20131202, end: 20140110
  11. RESTAMIN [Concomitant]
     Active Substance: DIPHENHYDRAMINE
     Route: 048
     Dates: start: 20131203, end: 20131217
  12. TSUMURA DAIKENCHUTO [Concomitant]
     Active Substance: HERBALS
     Route: 048
     Dates: start: 20140117, end: 20150520

REACTIONS (3)
  - Hypertension [Unknown]
  - Breast cancer [Fatal]
  - Protein urine [Recovering/Resolving]

NARRATIVE: CASE EVENT DATE: 20141031
